FAERS Safety Report 19028915 (Version 1)
Quarter: 2021Q1

REPORT INFORMATION
  Report Type: Report from Study
  Country: CA (occurrence: CA)
  Receive Date: 20210319
  Receipt Date: 20210319
  Transmission Date: 20210420
  Serious: No
  Sender: FDA-Public Use
  Company Number: CA-TOLMAR, INC.-21CA025742

PATIENT
  Sex: Male

DRUGS (2)
  1. ELIGARD [Suspect]
     Active Substance: LEUPROLIDE ACETATE
     Dosage: 22.5 MG, Q 3 MONTH
     Route: 058
     Dates: start: 20210125
  2. ELIGARD [Suspect]
     Active Substance: LEUPROLIDE ACETATE
     Indication: PROSTATE CANCER
     Dosage: 22.5 MG, Q 3 MONTH
     Route: 058
     Dates: start: 20191205

REACTIONS (8)
  - Suspected COVID-19 [Unknown]
  - Bone pain [Unknown]
  - Dizziness [Unknown]
  - Depression [Unknown]
  - Hypoaesthesia [Unknown]
  - Anxiety [Unknown]
  - Hot flush [Unknown]
  - Pollakiuria [Unknown]
